FAERS Safety Report 9834073 (Version 2)
Quarter: 2014Q1

REPORT INFORMATION
  Report Type: Spontaneous
  Country: DE (occurrence: DE)
  Receive Date: 20140122
  Receipt Date: 20140122
  Transmission Date: 20141002
  Serious: Yes (Other)
  Sender: FDA-Public Use
  Company Number: DE-ROCHE-1301021

PATIENT
  Age: 53 Year
  Sex: Female
  Weight: 60 kg

DRUGS (3)
  1. PEGASYS [Suspect]
     Indication: MYELOFIBROSIS
     Route: 058
     Dates: start: 20130924, end: 20131030
  2. PEGASYS [Suspect]
     Indication: OFF LABEL USE
     Route: 058
     Dates: start: 20131107
  3. PEGASYS [Suspect]
     Route: 058
     Dates: start: 20120910

REACTIONS (5)
  - Leukocytosis [Recovered/Resolved]
  - Thrombocytosis [Recovered/Resolved]
  - Product counterfeit [Unknown]
  - Injection site reaction [Not Recovered/Not Resolved]
  - Off label use [Unknown]
